FAERS Safety Report 18344220 (Version 2)
Quarter: 2022Q1

REPORT INFORMATION
  Report Type: Spontaneous
  Country: US (occurrence: US)
  Receive Date: 20201005
  Receipt Date: 20220301
  Transmission Date: 20220423
  Serious: No
  Sender: FDA-Public Use
  Company Number: US-PFIZER INC-2020380321

PATIENT
  Age: 45 Year
  Sex: Female

DRUGS (1)
  1. XELJANZ XR [Suspect]
     Active Substance: TOFACITINIB CITRATE
     Dosage: 11 MG
     Dates: start: 20181114

REACTIONS (3)
  - Teeth brittle [Unknown]
  - Mouth ulceration [Recovered/Resolved]
  - Pharyngeal ulceration [Unknown]

NARRATIVE: CASE EVENT DATE: 20210603
